FAERS Safety Report 6983872-6 (Version None)
Quarter: 2010Q3

REPORT INFORMATION
  Report Type: 
  Country: None (occurrence: None)
  Receive Date: 20100914
  Receipt Date: 20090320
  Transmission Date: 20110219
  Serious: No
  Sender: FDA-Public Use
  Company Number: US-WYE-H08203209

PATIENT
  Age: 47 Year
  Sex: Male
  Weight: 81.72 kg

DRUGS (1)
  1. ADVIL LIQUI-GELS [Suspect]
     Indication: PAIN
     Dosage: 2 TABLETS AS NEEDED
     Route: 048
     Dates: start: 20090208, end: 20090211

REACTIONS (2)
  - DRUG INEFFECTIVE [None]
  - PRODUCT QUALITY ISSUE [None]
